FAERS Safety Report 8280179-4 (Version None)
Quarter: 2012Q2

REPORT INFORMATION
  Report Type: 
  Country: None (occurrence: None)
  Receive Date: 20120412
  Receipt Date: 20110511
  Transmission Date: 20120825
  Serious: No
  Sender: FDA-Public Use
  Company Number: US-ASTRAZENECA-2011SE28477

PATIENT
  Sex: Female

DRUGS (5)
  1. VITAMIN TAB [Concomitant]
  2. FOSINOPRIL SODIUM [Concomitant]
  3. SUPPLEMENTS [Concomitant]
  4. DIAZIDE [Concomitant]
  5. NEXIUM [Suspect]
     Indication: GASTROOESOPHAGEAL REFLUX DISEASE
     Route: 048

REACTIONS (2)
  - HEADACHE [None]
  - INAPPROPRIATE SCHEDULE OF DRUG ADMINISTRATION [None]
